FAERS Safety Report 8859980 (Version 1)
Quarter: 2012Q4

REPORT INFORMATION
  Report Type: 
  Country: JP (occurrence: JP)
  Receive Date: 20121025
  Receipt Date: 20121025
  Transmission Date: 20130627
  Serious: Yes (Death, Other)
  Sender: FDA-Public Use
  Company Number: PHHY2010JP89078

PATIENT
  Age: 54 Year
  Sex: Male

DRUGS (14)
  1. AFINITOR [Suspect]
     Indication: RENAL CELL CARCINOMA
     Dosage: 10 mg, daily
     Route: 048
     Dates: start: 20100513, end: 20100524
  2. AFINITOR [Suspect]
     Dosage: 5 mg, daily
     Route: 048
     Dates: start: 20100527, end: 20100610
  3. AFINITOR [Suspect]
     Dosage: 5 mg, daily
     Route: 048
     Dates: start: 20100614, end: 20100622
  4. AFINITOR [Suspect]
     Dosage: 5 mg, daily
     Route: 048
     Dates: start: 20100623, end: 20100729
  5. AFINITOR [Suspect]
     Dosage: 5 mg, daily
     Route: 048
     Dates: start: 20100812, end: 20101025
  6. AFINITOR [Suspect]
     Dosage: 5 mg, daily
     Route: 048
     Dates: start: 20101026, end: 20110331
  7. INTERFERON ALFA [Concomitant]
     Indication: METASTATIC RENAL CELL CARCINOMA
     Dosage: 6000000 IU, UNK
     Dates: start: 20090817, end: 20091105
  8. SUNITINIB MALATE [Concomitant]
     Indication: METASTATIC RENAL CELL CARCINOMA
     Dosage: 25 mg, UNK
     Route: 048
     Dates: start: 20091124, end: 20100427
  9. SORAFENIB TOSILATE [Concomitant]
     Indication: METASTATIC RENAL CELL CARCINOMA
     Dosage: 800 mg, UNK
     Route: 048
     Dates: start: 20090817, end: 20091027
  10. SELBEX [Concomitant]
     Indication: METASTATIC RENAL CELL CARCINOMA
     Dosage: 150 mg, UNK
     Route: 048
  11. HYPEN [Concomitant]
     Indication: METASTATIC RENAL CELL CARCINOMA
     Dosage: 600 mg, UNK
     Route: 048
  12. MAGMITT [Concomitant]
     Indication: METASTATIC RENAL CELL CARCINOMA
     Dosage: 660 mg, UNK
     Route: 048
  13. FERO-GRADUMET [Concomitant]
     Indication: METASTATIC RENAL CELL CARCINOMA
     Dosage: 105 mg, UNK
     Route: 048
     Dates: start: 20100701
  14. KENALOG [Concomitant]
     Indication: PROPHYLAXIS
     Route: 001
     Dates: end: 20110331

REACTIONS (7)
  - General physical health deterioration [Fatal]
  - Decreased appetite [Fatal]
  - Malaise [Fatal]
  - Anaemia [Recovering/Resolving]
  - Red blood cell count decreased [Recovering/Resolving]
  - Stomatitis [Unknown]
  - Platelet count decreased [Unknown]
